FAERS Safety Report 23353585 (Version 2)
Quarter: 2024Q1

REPORT INFORMATION
  Report Type: Report from Study
  Country: CA (occurrence: CA)
  Receive Date: 20240101
  Receipt Date: 20240124
  Transmission Date: 20240410
  Serious: Yes (Death, Other)
  Sender: FDA-Public Use
  Company Number: CA-ABBVIE-5564250

PATIENT
  Sex: Male

DRUGS (1)
  1. VENCLEXTA [Suspect]
     Active Substance: VENETOCLAX
     Indication: Acute myeloid leukaemia
     Dosage: LAST ADMIN DATE: 2023
     Route: 048
     Dates: start: 20230302

REACTIONS (6)
  - Leukaemia [Fatal]
  - Septic shock [Fatal]
  - Sepsis [Fatal]
  - Respiratory failure [Fatal]
  - Acute myeloid leukaemia [Unknown]
  - Pneumonia [Fatal]

NARRATIVE: CASE EVENT DATE: 20230101
